FAERS Safety Report 14533332 (Version 1)
Quarter: 2018Q1

REPORT INFORMATION
  Report Type: Spontaneous
  Country: US (occurrence: US)
  Receive Date: 20180215
  Receipt Date: 20180215
  Transmission Date: 20180509
  Serious: No
  Sender: FDA-Public Use
  Company Number: US-TEVA-797968ACC

PATIENT
  Sex: Female

DRUGS (1)
  1. VERAPTAB-A [Suspect]
     Active Substance: VERAPAMIL HYDROCHLORIDE
     Indication: MIGRAINE
     Dosage: 60 MILLIGRAM DAILY;

REACTIONS (4)
  - Wrong technique in product usage process [Unknown]
  - Wrong technique in product usage process [None]
  - Hypoaesthesia oral [Unknown]
  - Petechiae [Not Recovered/Not Resolved]
